FAERS Safety Report 7060042-7 (Version None)
Quarter: 2010Q4

REPORT INFORMATION
  Report Type: 
  Country: None (occurrence: None)
  Receive Date: 20101025
  Receipt Date: 20100402
  Transmission Date: 20110411
  Serious: No
  Sender: FDA-Public Use
  Company Number: US-BRISTOL-MYERS SQUIBB COMPANY-14998389

PATIENT
  Age: 55 Year
  Sex: Female
  Weight: 113 kg

DRUGS (12)
  1. BUSPAR [Suspect]
     Indication: ANXIETY DISORDER
     Dosage: 8 WEEKS AGO,AFTER 1MONTH DOSE INCREASED TO 15MG:BID 1WEEK AGO DOSE WAS INCREASED TO 30MG:BID
     Route: 048
     Dates: start: 20091124
  2. OMEPRAZOLE [Suspect]
  3. SERTRALINE HYDROCHLORIDE [Suspect]
  4. SIMVASTATIN [Suspect]
  5. EFFEXOR [Concomitant]
  6. HYDROCHLOROTHIAZIDE [Concomitant]
  7. PROPRANOLOL [Concomitant]
  8. DOXYCYCLINE [Concomitant]
  9. MULTI-VITAMIN [Concomitant]
  10. CALCIUM [Concomitant]
  11. VITAMIN D [Concomitant]
  12. ZOLOFT [Concomitant]

REACTIONS (1)
  - BLOOD GLUCOSE DECREASED [None]
